FAERS Safety Report 6085447-2 (Version None)
Quarter: 2009Q1

REPORT INFORMATION
  Report Type: 
  Country: None (occurrence: None)
  Receive Date: 20090217
  Receipt Date: 20090129
  Transmission Date: 20090719
  Serious: Yes (Hospitalization)
  Sender: FDA-Public Use
  Company Number: B0557779A

PATIENT
  Age: 56 Year
  Sex: Female

DRUGS (2)
  1. VALACICLOVIR HYDROCHLORIDE (FORMULATION UNKNOWN) (GENERIC) [Suspect]
     Indication: HERPES ZOSTER
     Dosage: ORAL
     Route: 048
  2. ACYCLOVIR [Suspect]
     Dosage: 200 MG,

REACTIONS (6)
  - BLOOD BILIRUBIN INCREASED [None]
  - C-REACTIVE PROTEIN INCREASED [None]
  - INTERTRIGO [None]
  - RASH ERYTHEMATOUS [None]
  - RASH PRURITIC [None]
  - SKIN OEDEMA [None]
